FAERS Safety Report 7689659-3 (Version None)
Quarter: 2011Q3

REPORT INFORMATION
  Report Type: 
  Country: None (occurrence: None)
  Receive Date: 20110817
  Receipt Date: 20110810
  Transmission Date: 20111222
  Serious: Yes (Disabling)
  Sender: FDA-Public Use
  Company Number: NL-ROCHE-791753

PATIENT
  Sex: Male

DRUGS (4)
  1. BEVACIZUMAB [Suspect]
     Dosage: DISCONTINUED TEMPORARILY
     Route: 042
     Dates: start: 20110628
  2. BEVACIZUMAB [Suspect]
     Indication: GLIOBLASTOMA MULTIFORME
     Route: 042
     Dates: start: 20110531
  3. DEXAMETHASONE [Concomitant]
     Dosage: DOSE: 1 X 1/2 MG
  4. BEVACIZUMAB [Suspect]
     Route: 042
     Dates: start: 20110614

REACTIONS (1)
  - RETINOPATHY [None]
